FAERS Safety Report 8321940-7 (Version None)
Quarter: 2012Q2

REPORT INFORMATION
  Report Type: 
  Country: None (occurrence: None)
  Receive Date: 20120430
  Receipt Date: 20120425
  Transmission Date: 20120825
  Serious: Yes (Death)
  Sender: FDA-Public Use
  Company Number: GB-EISAI INC-E7389-02235-CLI-GB

PATIENT
  Sex: Female
  Weight: 70 kg

DRUGS (2)
  1. EPIRUBICIN HYDROCHLORIDE [Suspect]
     Indication: BREAST CANCER
     Route: 041
     Dates: start: 20120222, end: 20120101
  2. CAPECITABINE [Concomitant]
     Indication: BREAST CANCER
     Route: 048
     Dates: start: 20120222, end: 20120101

REACTIONS (1)
  - PULMONARY EMBOLISM [None]
